FAERS Safety Report 9570842 (Version 2)
Quarter: 2015Q4

REPORT INFORMATION
  Report Type: Report from Study
  Country: JP (occurrence: JP)
  Receive Date: 20131001
  Receipt Date: 20151116
  Transmission Date: 20160305
  Serious: Yes (Death, Other)
  Sender: FDA-Public Use
  Company Number: JP-ALEXION PHARMACEUTICALS INC.-A201302420

PATIENT
  Age: 20 Year
  Sex: Male
  Weight: 54 kg

DRUGS (21)
  1. CELLCEPT [Concomitant]
     Active Substance: MYCOPHENOLATE MOFETIL\MYCOPHENOLATE MOFETIL HYDROCHLORIDE
     Dosage: 750 MG, BID
     Route: 048
     Dates: start: 20130913, end: 20130913
  2. CELLCEPT [Concomitant]
     Active Substance: MYCOPHENOLATE MOFETIL\MYCOPHENOLATE MOFETIL HYDROCHLORIDE
     Dosage: 500 MG, BID
     Route: 048
     Dates: start: 20130914, end: 20130918
  3. ATARAX-P                           /00058402/ [Concomitant]
     Active Substance: HYDROXYZINE HYDROCHLORIDE
     Indication: THROMBOTIC MICROANGIOPATHY
     Dosage: 12.5 MG, QD
     Route: 042
     Dates: start: 20130817, end: 20130917
  4. CELLCEPT [Concomitant]
     Active Substance: MYCOPHENOLATE MOFETIL\MYCOPHENOLATE MOFETIL HYDROCHLORIDE
     Indication: PROPHYLAXIS AGAINST GRAFT VERSUS HOST DISEASE
     Dosage: 500 MG, BID
     Route: 048
     Dates: start: 20110826
  5. FUNGUARD [Concomitant]
     Active Substance: MICAFUNGIN SODIUM
     Indication: INFECTION PROPHYLAXIS
     Dosage: 150 MG, QD
     Route: 042
     Dates: start: 20130811, end: 20130917
  6. MEROPEN                            /01250501/ [Concomitant]
     Active Substance: MEROPENEM
     Indication: INFECTION PROPHYLAXIS
     Dosage: 2.8 G, QD
     Route: 042
     Dates: start: 20130902, end: 20130904
  7. PROGRAF [Concomitant]
     Active Substance: TACROLIMUS\TACROLIMUS ANHYDROUS
     Dosage: 0.06 MG, BID
     Route: 048
     Dates: start: 20130914, end: 20130918
  8. PREDONINE [Concomitant]
     Active Substance: PREDNISOLONE\PREDNISOLONE ACETATE\PREDNISOLONE SODIUM SUCCINATE
     Indication: PANCREATITIS
     Dosage: 6 MG, UNK
     Route: 042
     Dates: start: 20130811, end: 20130917
  9. PROGRAF [Concomitant]
     Active Substance: TACROLIMUS\TACROLIMUS ANHYDROUS
     Indication: PROPHYLAXIS AGAINST GRAFT VERSUS HOST DISEASE
     Dosage: 0.05 MG, BID
     Route: 048
     Dates: start: 20110826
  10. PROGRAF [Concomitant]
     Active Substance: TACROLIMUS\TACROLIMUS ANHYDROUS
     Dosage: 0.12 MG, BID
     Route: 048
     Dates: start: 20130913, end: 20130913
  11. NAFAMOSTAT [Concomitant]
     Active Substance: NAFAMOSTAT
     Indication: PANCREATITIS
     Dosage: 20 MG, QD
     Route: 042
     Dates: start: 20130811, end: 20190819
  12. RECOMODULIN [Concomitant]
     Active Substance: THROMBOMODULIN ALFA
     Indication: THROMBOTIC MICROANGIOPATHY
     Dosage: 12800 IU, QD
     Route: 042
     Dates: start: 20130829, end: 20130905
  13. LASIX [Concomitant]
     Active Substance: FUROSEMIDE
     Indication: FLUID RETENTION
     Dosage: 184 MG, QD
     Route: 042
     Dates: start: 20130812, end: 20130917
  14. OMEPRAZOLE. [Concomitant]
     Active Substance: OMEPRAZOLE
     Indication: PROPHYLAXIS AGAINST GASTROINTESTINAL ULCER
     Dosage: 40 MG, QD
     Route: 042
     Dates: start: 20130902, end: 20130917
  15. ROCEPHIN [Concomitant]
     Active Substance: CEFTRIAXONE SODIUM
     Indication: INFECTION PROPHYLAXIS
     Dosage: 2 G, QD
     Route: 042
     Dates: start: 20130913, end: 20130917
  16. GASTER [Concomitant]
     Active Substance: FAMOTIDINE
     Indication: PROPHYLAXIS
     Dosage: 43 MG, QD
     Route: 042
     Dates: start: 20130811, end: 20130902
  17. SOLIRIS [Suspect]
     Active Substance: ECULIZUMAB
     Indication: HAEMOLYTIC URAEMIC SYNDROME
     Dosage: 900 MG, SINGLE
     Route: 042
     Dates: start: 20130913, end: 20130913
  18. VICCLOX                            /00587301/ [Concomitant]
     Active Substance: ACYCLOVIR SODIUM
     Indication: INFECTION PROPHYLAXIS
     Dosage: 400 MG, QD
     Route: 042
     Dates: start: 20130811, end: 20130914
  19. ANTHROBIN P [Concomitant]
     Active Substance: ANTITHROMBIN III HUMAN
     Indication: PRODUCT USED FOR UNKNOWN INDICATION
     Dosage: 3000 MG, UNK
     Route: 065
     Dates: start: 20130826, end: 20130907
  20. TEICOPLANIN [Concomitant]
     Active Substance: TEICOPLANIN
     Indication: INFECTION PROPHYLAXIS
     Dosage: 400 MG, QD
     Route: 042
     Dates: start: 20130823, end: 20130916
  21. DOBUTAMINE [Concomitant]
     Active Substance: DOBUTAMINE\DOBUTAMINE HYDROCHLORIDE
     Indication: CARDIAC FAILURE
     Dosage: 300 MG, QD
     Route: 042
     Dates: start: 20130902, end: 20130917

REACTIONS (1)
  - Respiratory failure [Fatal]

NARRATIVE: CASE EVENT DATE: 201309
